FAERS Safety Report 7643696-3 (Version None)
Quarter: 2011Q3

REPORT INFORMATION
  Report Type: 
  Country: None (occurrence: None)
  Receive Date: 20110729
  Receipt Date: 20110725
  Transmission Date: 20111222
  Serious: Yes (Life-Threatening)
  Sender: FDA-Public Use
  Company Number: PHHY2011BR66689

PATIENT
  Sex: Male
  Weight: 65 kg

DRUGS (11)
  1. EXELON [Suspect]
     Indication: NERVOUS SYSTEM DISORDER
     Dosage: 9.5 MG, UNK
     Route: 062
  2. MINERALS NOS [Concomitant]
     Dosage: 1 DF, UNK
  3. MEMANTINE HCL [Concomitant]
     Dosage: 1 DF, BID
  4. BETAHISTINE [Concomitant]
     Dosage: UNK UKN, UNK
  5. BETASERC [Concomitant]
     Dosage: 24 MG, BID
  6. CLONAZEPAM [Concomitant]
     Indication: NERVOUS SYSTEM DISORDER
     Dosage: OF A HALF (UNSPECIFIED) IN THE MORNING AND HALF (UNSPECIFIED) AT NIGHT
  7. VITAMINS WITH MINERALS [Concomitant]
     Dosage: UNK UKN, UNK
  8. NIMODIPINE [Concomitant]
     Dosage: 30 MG, BID
  9. MEMANTINE HCL [Concomitant]
     Dosage: UNK UKN, UNK
  10. MULTI-VITAMIN [Concomitant]
     Dosage: 1 DF, UNK
  11. VINPOCETINE [Concomitant]
     Dosage: UNK UKN, UNK

REACTIONS (8)
  - MOUTH INJURY [None]
  - CONFUSIONAL STATE [None]
  - ABNORMAL BEHAVIOUR [None]
  - ACTIVITIES OF DAILY LIVING IMPAIRED [None]
  - DIZZINESS [None]
  - MEMORY IMPAIRMENT [None]
  - MUSCULAR WEAKNESS [None]
  - AGITATION [None]
